FAERS Safety Report 16380548 (Version 1)
Quarter: 2019Q2

REPORT INFORMATION
  Report Type: Spontaneous
  Country: NL (occurrence: NL)
  Receive Date: 20190601
  Receipt Date: 20190601
  Transmission Date: 20190711
  Serious: Yes (Life-Threatening, Other)
  Sender: FDA-Public Use
  Company Number: NL-AUROBINDO-AUR-APL-2019-030948

PATIENT

DRUGS (1)
  1. TAMSULOSIN 0.4 MG MODIFIED RELEASE CAPSULES, HARD [Suspect]
     Active Substance: TAMSULOSIN
     Indication: POLLAKIURIA
     Dosage: 1 DOSAGE FORM, ONCE A DAY,1X PER DAG
     Route: 048
     Dates: start: 20190503, end: 20190505

REACTIONS (1)
  - Urinary retention [Recovering/Resolving]

NARRATIVE: CASE EVENT DATE: 20190503
